FAERS Safety Report 16123333 (Version 1)
Quarter: 2019Q1

REPORT INFORMATION
  Report Type: Spontaneous
  Country: DE (occurrence: DE)
  Receive Date: 20190327
  Receipt Date: 20190327
  Transmission Date: 20190418
  Serious: Yes (Death, Other)
  Sender: FDA-Public Use
  Company Number: DE-DSJP-DSE-2019-110638

PATIENT

DRUGS (1)
  1. LIXIANA [Suspect]
     Active Substance: EDOXABAN TOSYLATE
     Indication: PRODUCT USED FOR UNKNOWN INDICATION

REACTIONS (6)
  - Pulmonary oedema [Fatal]
  - Product administration error [Fatal]
  - Head injury [Fatal]
  - Renal failure [Fatal]
  - Subdural haematoma [Fatal]
  - Overdose [Fatal]

NARRATIVE: CASE EVENT DATE: 201902
